FAERS Safety Report 6082584-3 (Version None)
Quarter: 2009Q1

REPORT INFORMATION
  Report Type: 
  Country: None (occurrence: None)
  Receive Date: 20090218
  Receipt Date: 20090206
  Transmission Date: 20090719
  Serious: Yes (Hospitalization)
  Sender: FDA-Public Use
  Company Number: GB-PFIZER INC-2009167032

PATIENT

DRUGS (13)
  1. SUTENT [Suspect]
     Indication: RENAL CELL CARCINOMA
     Route: 048
     Dates: end: 20090101
  2. AMOXICILLIN [Concomitant]
  3. ATENOLOL [Concomitant]
     Route: 048
  4. BENDROFLUAZIDE [Concomitant]
     Route: 048
  5. CEFTRIAXONE [Concomitant]
  6. CLARITHROMYCIN [Concomitant]
  7. FLUCONAZOLE [Concomitant]
     Indication: VULVOVAGINAL CANDIDIASIS
  8. GASTROGRAFIN [Concomitant]
  9. METRONIDAZOLE [Concomitant]
  10. PROCHLORPERAZINE [Concomitant]
  11. PROCTOSEDYL ^HOECHST^ [Concomitant]
     Route: 061
  12. TRAMADOL HYDROCHLORIDE [Concomitant]
  13. VALSARTAN [Concomitant]

REACTIONS (1)
  - SPLENIC RUPTURE [None]
